FAERS Safety Report 25944174 (Version 2)
Quarter: 2025Q4

REPORT INFORMATION
  Report Type: Report from Study
  Country: US (occurrence: None)
  Receive Date: 20251021
  Receipt Date: 20251219
  Transmission Date: 20260117
  Serious: Yes (Other)
  Sender: UCB
  Company Number: US-UCBSA-2025065733

PATIENT
  Age: 33 Year

DRUGS (3)
  1. LEVETIRACETAM [Suspect]
     Active Substance: LEVETIRACETAM
     Indication: Seizure
     Dosage: 500MG-TAKE 2 TABLETS EVERY MORNING  AND 3 TABLETS EVERY EVENING
     Route: 061
  2. LAMICTAL XR [Concomitant]
     Active Substance: LAMOTRIGINE
     Indication: Epilepsy
     Dosage: 200 MILLIGRAM, ONCE DAILY (QD)
     Route: 061
  3. LORAZEPAM [Concomitant]
     Active Substance: LORAZEPAM
     Indication: Anxiety
     Dosage: 1 MILLIGRAM, 1 TABLET EVERY 4 TO 6 HOURS AS NEEDED
     Route: 061

REACTIONS (3)
  - Seizure [Recovered/Resolved]
  - Stress at work [Recovered/Resolved]
  - Inappropriate schedule of product administration [Unknown]
